FAERS Safety Report 20138995 (Version 1)
Quarter: 2021Q4

REPORT INFORMATION
  Report Type: Spontaneous
  Country: SI (occurrence: SI)
  Receive Date: 20211202
  Receipt Date: 20211202
  Transmission Date: 20220303
  Serious: Yes (Hospitalization)
  Sender: FDA-Public Use
  Company Number: SI-MYLANLABS-2021M1087962

PATIENT

DRUGS (5)
  1. FENOFIBRATE [Suspect]
     Active Substance: FENOFIBRATE
     Indication: Hypertriglyceridaemia
     Dosage: 2 DOSAGE FORM, QD (2 CPS PER DAY)
  2. COVID-19 VACCINE NOS [Suspect]
     Active Substance: COVID-19 VACCINE NOS
     Indication: COVID-19 prophylaxis
     Dosage: UNK
     Dates: start: 20210115
  3. IMURAN                             /00001501/ [Concomitant]
     Dosage: UNK
  4. REMDESIVIR [Concomitant]
     Active Substance: REMDESIVIR
     Dosage: UNK, ACCORDING TO SCHEDULE 5 DAYS
  5. IMUNOFAN [Concomitant]
     Indication: Crohn^s disease
     Dosage: UNK

REACTIONS (3)
  - COVID-19 [Recovered/Resolved]
  - Hepatic function abnormal [Unknown]
  - Off label use [Unknown]
